FAERS Safety Report 6744374-5 (Version None)
Quarter: 2010Q2

REPORT INFORMATION
  Report Type: 
  Country: None (occurrence: None)
  Receive Date: 20100527
  Receipt Date: 20100521
  Transmission Date: 20101027
  Serious: Yes (Death, Hospitalization)
  Sender: FDA-Public Use
  Company Number: IT-GENENTECH-255340

PATIENT
  Sex: Male

DRUGS (19)
  1. MABTHERA [Suspect]
     Indication: DIFFUSE LARGE B-CELL LYMPHOMA
     Dosage: 650 MG, 1/WEEK
     Route: 065
  2. MABTHERA [Suspect]
     Indication: ANAEMIA HAEMOLYTIC AUTOIMMUNE
     Route: 065
  3. CANCER THERAPY ALKYLATING AGENT NOS [Suspect]
     Indication: DIFFUSE LARGE B-CELL LYMPHOMA
     Route: 065
  4. PREDNISONE TAB [Concomitant]
     Indication: DIFFUSE LARGE B-CELL LYMPHOMA
     Dosage: 100 MG, QD
  5. PREDNISONE TAB [Concomitant]
     Indication: ANAEMIA HAEMOLYTIC AUTOIMMUNE
  6. ETOPOSIDE [Concomitant]
     Indication: DIFFUSE LARGE B-CELL LYMPHOMA
  7. ETOPOSIDE [Concomitant]
     Indication: ANAEMIA HAEMOLYTIC AUTOIMMUNE
  8. DOXORUBICIN HCL [Concomitant]
     Indication: DIFFUSE LARGE B-CELL LYMPHOMA
  9. DOXORUBICIN HCL [Concomitant]
     Indication: ANAEMIA HAEMOLYTIC AUTOIMMUNE
  10. CYCLOPHOSPHAMIDE [Concomitant]
     Indication: DIFFUSE LARGE B-CELL LYMPHOMA
  11. CYCLOPHOSPHAMIDE [Concomitant]
     Indication: ANAEMIA HAEMOLYTIC AUTOIMMUNE
  12. VINCRISTINE [Concomitant]
     Indication: DIFFUSE LARGE B-CELL LYMPHOMA
  13. VINCRISTINE [Concomitant]
     Indication: ANAEMIA HAEMOLYTIC AUTOIMMUNE
  14. BLEOMYCIN [Concomitant]
     Indication: DIFFUSE LARGE B-CELL LYMPHOMA
  15. BLEOMYCIN [Concomitant]
     Indication: ANAEMIA HAEMOLYTIC AUTOIMMUNE
  16. IDARUBICIN HCL [Concomitant]
     Indication: DIFFUSE LARGE B-CELL LYMPHOMA
  17. IDARUBICIN HCL [Concomitant]
     Indication: ANAEMIA HAEMOLYTIC AUTOIMMUNE
  18. CISPLATIN [Concomitant]
     Indication: DIFFUSE LARGE B-CELL LYMPHOMA
  19. CISPLATIN [Concomitant]
     Indication: ANAEMIA HAEMOLYTIC AUTOIMMUNE

REACTIONS (1)
  - PROGRESSIVE MULTIFOCAL LEUKOENCEPHALOPATHY [None]
